FAERS Safety Report 12915865 (Version 1)
Quarter: 2016Q4

REPORT INFORMATION
  Report Type: Report from Study
  Country: US (occurrence: US)
  Receive Date: 20161107
  Receipt Date: 20161107
  Transmission Date: 20170207
  Serious: No
  Sender: FDA-Public Use
  Company Number: US-ALEXION PHARMACEUTICALS INC.-A201608474

PATIENT
  Sex: Female

DRUGS (1)
  1. SOLIRIS [Suspect]
     Active Substance: ECULIZUMAB
     Indication: HAEMOLYTIC URAEMIC SYNDROME
     Route: 042

REACTIONS (6)
  - Back pain [Unknown]
  - Viral infection [Recovered/Resolved]
  - Rhinorrhoea [Unknown]
  - Headache [Recovering/Resolving]
  - Hypersensitivity [Unknown]
  - Blood pressure abnormal [Recovered/Resolved]
